FAERS Safety Report 7459310-6 (Version None)
Quarter: 2011Q2

REPORT INFORMATION
  Report Type: 
  Country: None (occurrence: None)
  Receive Date: 20110505
  Receipt Date: 20110503
  Transmission Date: 20111010
  Serious: Yes (Other)
  Sender: FDA-Public Use
  Company Number: US-PFIZER INC-2011095186

PATIENT
  Sex: Female
  Weight: 95.238 kg

DRUGS (6)
  1. LYRICA [Suspect]
     Indication: FIBROMYALGIA
     Dosage: 75 MG, 2X/DAY
     Route: 048
     Dates: start: 20110101
  2. HYDROCHLOROTHIAZIDE [Concomitant]
     Indication: HYPERTENSION
     Dosage: 50 MG, UNK
  3. DARVOCET [Concomitant]
     Indication: PAIN
     Dosage: UNK
  4. AMILORIDE [Concomitant]
     Indication: HYPERTENSION
     Dosage: 5 MG, UNK
  5. MOTRIN [Suspect]
     Indication: PAIN
     Dosage: 800 MG, 2X/DAY
  6. LISINOPRIL [Concomitant]
     Indication: HYPERTENSION
     Dosage: 10 MG, UNK

REACTIONS (2)
  - SWELLING [None]
  - RASH [None]
